FAERS Safety Report 21769624 (Version 1)
Quarter: 2022Q4

REPORT INFORMATION
  Report Type: Spontaneous
  Country: TW (occurrence: TW)
  Receive Date: 20221223
  Receipt Date: 20221223
  Transmission Date: 20230113
  Serious: Yes (Other)
  Sender: FDA-Public Use
  Company Number: TW-SUN PHARMACEUTICAL INDUSTRIES LTD-2022RR-369361

PATIENT
  Age: 33 Year
  Sex: Female

DRUGS (4)
  1. AMOXICILLIN\CLAVULANIC ACID [Suspect]
     Active Substance: AMOXICILLIN\CLAVULANIC ACID
     Indication: Infection
     Dosage: UNK
     Route: 065
  2. METHOTREXATE [Suspect]
     Active Substance: METHOTREXATE
     Indication: Infection
     Dosage: 7.5 MILLIGRAM, WEEKLY
     Route: 065
  3. PREDNISOLONE [Suspect]
     Active Substance: PREDNISOLONE
     Indication: Infection
     Dosage: 30 MILLIGRAM, BID
     Route: 065
  4. FLOMOXEF [Concomitant]
     Active Substance: FLOMOXEF
     Indication: Infection
     Dosage: UNK
     Route: 065

REACTIONS (4)
  - Drug ineffective [Unknown]
  - Weight increased [Unknown]
  - Skin striae [Unknown]
  - Disease recurrence [Unknown]
